FAERS Safety Report 12277548 (Version 1)
Quarter: 2016Q2

REPORT INFORMATION
  Report Type: Other
  Country: JP (occurrence: JP)
  Receive Date: 20160418
  Receipt Date: 20160418
  Transmission Date: 20160815
  Serious: Yes (Life-Threatening, Hospitalization)
  Sender: FDA-Public Use
  Company Number: JP-LABORATOIRE HRA PHARMA-1050658

PATIENT
  Age: 49 Year
  Sex: Male
  Weight: 72.3 kg

DRUGS (3)
  1. SULFAMETHOXAZOLE AND TRIMETHOPRIM [Suspect]
     Active Substance: SULFAMETHOXAZOLE\TRIMETHOPRIM
     Route: 048
     Dates: start: 20150806
  2. METOPIRONE [Suspect]
     Active Substance: METYRAPONE
     Route: 048
     Dates: start: 20150806
  3. SUTENT [Suspect]
     Active Substance: SUNITINIB MALATE
     Route: 048
     Dates: start: 20150216

REACTIONS (1)
  - Disseminated intravascular coagulation [None]
